FAERS Safety Report 10483160 (Version 1)
Quarter: 2014Q3

REPORT INFORMATION
  Report Type: Report from Study
  Country: GB (occurrence: GB)
  Receive Date: 20140930
  Receipt Date: 20140930
  Transmission Date: 20150326
  Serious: Yes (Other)
  Sender: FDA-Public Use
  Company Number: GB-AMGEN-GBRSP2014073346

PATIENT
  Sex: Female
  Weight: 67 kg

DRUGS (1)
  1. PROLIA [Suspect]
     Active Substance: DENOSUMAB
     Indication: OSTEOPOROSIS POSTMENOPAUSAL
     Route: 065

REACTIONS (11)
  - Spinal deformity [Unknown]
  - Parkinson^s disease [Unknown]
  - Dementia [Unknown]
  - Back pain [Unknown]
  - Cardiac failure congestive [Unknown]
  - Asthenia [Unknown]
  - Activities of daily living impaired [Unknown]
  - Mobility decreased [Unknown]
  - Hypertension [Unknown]
  - Body height decreased [Unknown]
  - Liver disorder [Unknown]
